FAERS Safety Report 9058644 (Version 1)
Quarter: 2013Q1

REPORT INFORMATION
  Report Type: Spontaneous
  Country: US (occurrence: US)
  Receive Date: 20130211
  Receipt Date: 20130211
  Transmission Date: 20140127
  Serious: Yes (Hospitalization, Other)
  Sender: FDA-Public Use
  Company Number: US-TARO-2013P1001739

PATIENT
  Age: 54 Year
  Sex: Male

DRUGS (2)
  1. CARBAMAZEPINE [Suspect]
  2. CARBAMAZEPINE [Suspect]

REACTIONS (4)
  - Drug effect incomplete [Unknown]
  - Convulsion [Recovered/Resolved]
  - Subdural haematoma [Unknown]
  - Fall [Unknown]
